FAERS Safety Report 17911489 (Version 1)
Quarter: 2020Q2

REPORT INFORMATION
  Report Type: Report from Study
  Country: US (occurrence: US)
  Receive Date: 20200618
  Receipt Date: 20200618
  Transmission Date: 20200714
  Serious: No
  Sender: FDA-Public Use
  Company Number: NVSC2020US169002

PATIENT
  Sex: Male

DRUGS (3)
  1. MAYZENT [Suspect]
     Active Substance: SIPONIMOD
     Dosage: 2 MG, OTHER
     Route: 048
     Dates: start: 202005
  2. BACLOFEN. [Concomitant]
     Active Substance: BACLOFEN
     Indication: PRODUCT USED FOR UNKNOWN INDICATION
     Dosage: UNK
     Route: 065
  3. MAYZENT [Suspect]
     Active Substance: SIPONIMOD
     Indication: MULTIPLE SCLEROSIS
     Dosage: 0.25 MG, OTHER
     Route: 048
     Dates: start: 202005

REACTIONS (6)
  - Hypoaesthesia [Unknown]
  - Weight decreased [Unknown]
  - Paraesthesia [Unknown]
  - Dysuria [Unknown]
  - Neck pain [Unknown]
  - Decreased appetite [Unknown]
